FAERS Safety Report 7125343-2 (Version None)
Quarter: 2010Q4

REPORT INFORMATION
  Report Type: 
  Country: None (occurrence: None)
  Receive Date: 20101129
  Receipt Date: 20101116
  Transmission Date: 20110411
  Serious: Yes (Other)
  Sender: FDA-Public Use
  Company Number: US-ROCHE-722538

PATIENT
  Sex: Female
  Weight: 63.5 kg

DRUGS (4)
  1. ACCUTANE [Suspect]
     Route: 065
     Dates: start: 19820101
  2. ACCUTANE [Suspect]
     Route: 065
     Dates: start: 19890101, end: 19910101
  3. ACCUTANE [Suspect]
     Route: 065
     Dates: start: 19910101
  4. ACCUTANE [Suspect]
     Dosage: 40 MG/80 MG ALTERNATE DAYS
     Route: 065
     Dates: start: 19990101

REACTIONS (6)
  - COLITIS ULCERATIVE [None]
  - DEPRESSION [None]
  - GASTROINTESTINAL INJURY [None]
  - IRRITABLE BOWEL SYNDROME [None]
  - OROPHARYNGEAL PAIN [None]
  - RASH [None]
